FAERS Safety Report 13939686 (Version 3)
Quarter: 2020Q1

REPORT INFORMATION
  Report Type: Spontaneous
  Country: US (occurrence: US)
  Receive Date: 20170906
  Receipt Date: 20200106
  Transmission Date: 20200409
  Serious: Yes (Death, Other)
  Sender: FDA-Public Use
  Company Number: US-ELI_LILLY_AND_COMPANY-US201708012783

PATIENT
  Age: 62 Year
  Sex: Male

DRUGS (6)
  1. CIALIS [Suspect]
     Active Substance: TADALAFIL
     Dosage: 20 MG, UNKNOWN
     Route: 065
     Dates: start: 20150825, end: 20150930
  2. CIALIS [Suspect]
     Active Substance: TADALAFIL
     Dosage: 5 MG, UNKNOWN
     Route: 065
     Dates: start: 20140219, end: 20150101
  3. VIAGRA [Suspect]
     Active Substance: SILDENAFIL CITRATE
     Indication: ERECTILE DYSFUNCTION
     Dosage: 25 MG, UNKNOWN
     Route: 065
     Dates: start: 20150706, end: 20150805
  4. CIALIS [Suspect]
     Active Substance: TADALAFIL
     Dosage: 5 MG, UNKNOWN
     Route: 065
     Dates: start: 20120321, end: 20130613
  5. LEVITRA [Suspect]
     Active Substance: VARDENAFIL HYDROCHLORIDE
     Indication: ERECTILE DYSFUNCTION
     Dosage: 10 MG, UNKNOWN
     Route: 065
  6. CIALIS [Suspect]
     Active Substance: TADALAFIL
     Indication: PRODUCT USED FOR UNKNOWN INDICATION
     Dosage: 20 MG, UNKNOWN
     Route: 065
     Dates: start: 20070628, end: 20111211

REACTIONS (7)
  - Brain neoplasm malignant [Fatal]
  - Anxiety [Unknown]
  - Metastatic malignant melanoma [Fatal]
  - Depression [Unknown]
  - Metastases to pancreas [Unknown]
  - Hepatic cancer [Fatal]
  - Malignant melanoma stage IV [Unknown]

NARRATIVE: CASE EVENT DATE: 20150923
